FAERS Safety Report 14208208 (Version 1)
Quarter: 2017Q4

REPORT INFORMATION
  Report Type: Spontaneous
  Country: US (occurrence: US)
  Receive Date: 20171120
  Receipt Date: 20171120
  Transmission Date: 20180321
  Serious: Yes (Hospitalization, Other)
  Sender: FDA-Public Use
  Company Number: None

PATIENT
  Age: 62 Year
  Sex: Female
  Weight: 57.6 kg

DRUGS (5)
  1. CALCIUM [Concomitant]
     Active Substance: CALCIUM
  2. VITAMIN B [Concomitant]
     Active Substance: VITAMIN B
  3. VITAMIN D [Concomitant]
     Active Substance: CHOLECALCIFEROL
  4. FISH OIL [Concomitant]
     Active Substance: FISH OIL
  5. RECLAST [Suspect]
     Active Substance: ZOLEDRONIC ACID
     Indication: OSTEOPOROSIS
     Dosage: OTHER FREQUENCY:YEARLY;?
     Route: 042
     Dates: start: 20170604, end: 20170604

REACTIONS (9)
  - Labyrinthitis [None]
  - Vertigo [None]
  - Diplopia [None]
  - Nausea [None]
  - Vomiting [None]
  - Dehydration [None]
  - Eye irritation [None]
  - Vitamin B complex deficiency [None]
  - Cerebrovascular accident [None]

NARRATIVE: CASE EVENT DATE: 20170706
